FAERS Safety Report 9895231 (Version 2)
Quarter: 2014Q1

REPORT INFORMATION
  Report Type: Spontaneous
  Country: US (occurrence: US)
  Receive Date: 20140213
  Receipt Date: 20140213
  Transmission Date: 20141002
  Serious: No
  Sender: FDA-Public Use
  Company Number: US-BRISTOL-MYERS SQUIBB COMPANY-19375955

PATIENT
  Age: 64 Year
  Sex: Female
  Weight: 61.22 kg

DRUGS (1)
  1. ORENCIA [Suspect]
     Indication: RHEUMATOID ARTHRITIS
     Dosage: INF,6INFS,1DOSE:APR,2DOSE:MAY,3DOSE:07JUN,4DOSE:08JUL,5TH DOSE:AUG,6DOSE:03SEP13
     Route: 042

REACTIONS (4)
  - Oral mucosal blistering [Unknown]
  - Oropharyngeal pain [Unknown]
  - Herpes zoster [Unknown]
  - Urticaria [Unknown]
